FAERS Safety Report 8961213 (Version 1)
Quarter: 2012Q4

REPORT INFORMATION
  Report Type: 
  Country: US (occurrence: US)
  Receive Date: 20121213
  Receipt Date: 20121213
  Transmission Date: 20130627
  Serious: No
  Sender: FDA-Public Use
  Company Number: US-ALLERGAN-1212548US

PATIENT
  Sex: Female

DRUGS (4)
  1. LUMIGAN� 0.01% [Suspect]
     Indication: GLAUCOMA
     Dosage: 2 Gtt, qhs
     Route: 047
     Dates: start: 2011
  2. AZOPT [Concomitant]
     Indication: GLAUCOMA
     Dosage: 1 Gtt, bid
     Route: 047
  3. BLOOD PRESSURE PILL [Concomitant]
     Indication: BLOOD PRESSURE
  4. VISINE                             /00256502/ [Concomitant]
     Indication: DRY EYES

REACTIONS (5)
  - Pigmentation disorder [Recovering/Resolving]
  - Swelling face [Recovering/Resolving]
  - Paranasal sinus hypersecretion [Recovering/Resolving]
  - Eyelash thickening [Recovering/Resolving]
  - Ocular hyperaemia [Recovered/Resolved]
